FAERS Safety Report 11152419 (Version 5)
Quarter: 2020Q3

REPORT INFORMATION
  Report Type: Report from Study
  Country: DE (occurrence: DE)
  Receive Date: 20150601
  Receipt Date: 20150708
  Transmission Date: 20201105
  Serious: Yes (Hospitalization)
  Sender: FDA-Public Use
  Company Number: DE-JNJFOC-20150515749

PATIENT
  Age: 49 Year
  Sex: Female
  Weight: 80.6 kg

DRUGS (2)
  1. SILTUXIMAB [Suspect]
     Active Substance: SILTUXIMAB
  2. SILTUXIMAB [Suspect]
     Active Substance: SILTUXIMAB
     Indication: PLASMA CELL MYELOMA
     Dates: start: 20140821

REACTIONS (2)
  - Mastoiditis [Recovered/Resolved]
  - Eustachian tube disorder [Recovered/Resolved]

NARRATIVE: CASE EVENT DATE: 20150408
